FAERS Safety Report 13606219 (Version 1)
Quarter: 2017Q2

REPORT INFORMATION
  Report Type: Spontaneous
  Country: DE (occurrence: DE)
  Receive Date: 20170602
  Receipt Date: 20170602
  Transmission Date: 20170830
  Serious: Yes (Other)
  Sender: FDA-Public Use
  Company Number: DE-SUN PHARMACEUTICAL INDUSTRIES LTD-2015R1-99320

PATIENT
  Sex: Female
  Weight: 57 kg

DRUGS (1)
  1. FUROSEMIDE. [Suspect]
     Active Substance: FUROSEMIDE
     Indication: WEIGHT CONTROL
     Dosage: 180 MG, DAILY
     Route: 065

REACTIONS (2)
  - Drug use disorder [Unknown]
  - Hypokalaemia [Recovered/Resolved]
